FAERS Safety Report 8413162-6 (Version None)
Quarter: 2012Q2

REPORT INFORMATION
  Report Type: 
  Country: None (occurrence: None)
  Receive Date: 20120605
  Receipt Date: 20120530
  Transmission Date: 20120825
  Serious: No
  Sender: FDA-Public Use
  Company Number: US-AMGEN-USASP2012033863

PATIENT
  Age: 49 Year
  Sex: Male

DRUGS (1)
  1. ENBREL [Suspect]
     Indication: PSORIATIC ARTHROPATHY
     Dosage: 50 MG, QWK
     Dates: start: 20120224

REACTIONS (6)
  - DIZZINESS [None]
  - ASTHENIA [None]
  - HYPOAESTHESIA [None]
  - FATIGUE [None]
  - PARAESTHESIA [None]
  - NAUSEA [None]
